FAERS Safety Report 6549584-8 (Version None)
Quarter: 2010Q1

REPORT INFORMATION
  Report Type: 
  Country: None (occurrence: None)
  Receive Date: 20100125
  Receipt Date: 20100114
  Transmission Date: 20100710
  Serious: Yes (Disabling)
  Sender: FDA-Public Use
  Company Number: GB-JNJFOC-20090805049

PATIENT
  Sex: Female
  Weight: 69 kg

DRUGS (7)
  1. REMICADE [Suspect]
     Indication: CROHN'S DISEASE
     Dosage: TOTAL OF 5 INFUSIONS RECEIVED
     Route: 042
  2. REMICADE [Suspect]
     Route: 042
  3. PENTASA [Concomitant]
     Dosage: ON DRUG FOR 7 YEARS
  4. AZATHIOPRINE [Concomitant]
     Dosage: ON DRUG FOR 3 YEARS
  5. ASCORBIC ACID [Concomitant]
  6. LORATADINE [Concomitant]
     Indication: PREMEDICATION
     Route: 048
  7. PARACETAMOL [Concomitant]
     Indication: PREMEDICATION
     Route: 048

REACTIONS (7)
  - ABASIA [None]
  - ARTHRALGIA [None]
  - BACK PAIN [None]
  - CHEST PAIN [None]
  - DRUG INEFFECTIVE [None]
  - JOINT SWELLING [None]
  - MYALGIA [None]
